FAERS Safety Report 23077480 (Version 2)
Quarter: 2024Q1

REPORT INFORMATION
  Report Type: Spontaneous
  Country: US (occurrence: US)
  Receive Date: 20231018
  Receipt Date: 20240110
  Transmission Date: 20240410
  Serious: No
  Sender: FDA-Public Use
  Company Number: US-SA-SAC20231012001676

PATIENT
  Age: 38 Year
  Sex: Male

DRUGS (1)
  1. DUPIXENT [Suspect]
     Active Substance: DUPILUMAB
     Indication: Dermatitis atopic
     Dosage: 300 MG, QOW
     Route: 058

REACTIONS (7)
  - Dry skin [Recovering/Resolving]
  - Scratch [Unknown]
  - Peripheral swelling [Recovering/Resolving]
  - Lacrimation decreased [Unknown]
  - Pruritus [Unknown]
  - Dry eye [Unknown]
  - Injection site pruritus [Unknown]
